FAERS Safety Report 10041999 (Version 3)
Quarter: 2014Q2

REPORT INFORMATION
  Report Type: Spontaneous
  Country: JP (occurrence: JP)
  Receive Date: 20140327
  Receipt Date: 20140604
  Transmission Date: 20141212
  Serious: Yes (Hospitalization)
  Sender: FDA-Public Use
  Company Number: JP-BRISTOL-MYERS SQUIBB COMPANY-20554374

PATIENT
  Age: 87 Year
  Sex: Male
  Weight: 63 kg

DRUGS (13)
  1. BYDUREON [Suspect]
     Indication: DIABETES MELLITUS
     Dosage: DOSE UNKNOWN
     Route: 058
     Dates: start: 20131203, end: 20140121
  2. KREMEZIN [Concomitant]
     Dosage: AFTER MORNING AND EVENING MEALS
     Route: 048
     Dates: start: 20110704
  3. NERIPROCT [Concomitant]
     Dosage: BEFORE SLEEP,OINTMET
     Route: 062
  4. KAYEXALATE [Concomitant]
     Dosage: AFTER EVERY MEAL
     Route: 048
     Dates: start: 20100901
  5. OLMETEC [Concomitant]
     Dosage: TABS
     Route: 048
     Dates: start: 20091014
  6. DEPAS [Concomitant]
     Dosage: TABS
     Route: 048
     Dates: start: 20091002
  7. ROXATIDINE ACETATE HYDROCHLORIDE [Concomitant]
     Dosage: CAPS
     Route: 048
     Dates: start: 20090919
  8. PLETAAL [Concomitant]
     Indication: CEREBRAL INFARCTION
     Dosage: AFTER MORNING MEAL
     Route: 048
     Dates: start: 20120323
  9. PAXIL [Concomitant]
     Route: 048
     Dates: start: 20091028
  10. CRESTOR [Concomitant]
     Dosage: TABS
     Route: 048
     Dates: start: 20130905
  11. FEBUXOSTAT [Concomitant]
     Dosage: TABS
     Route: 048
     Dates: start: 20131003
  12. PANTOSIN [Concomitant]
     Dosage: NUMBER OF SEPARATE DOSAGES UNKNOWN
     Route: 048
     Dates: start: 20090909
  13. MAGNESIUM OXIDE [Concomitant]
     Dosage: AFTER MORNING AND EVENING MEALS
     Route: 048
     Dates: start: 20090909

REACTIONS (6)
  - Subileus [Recovered/Resolved]
  - Constipation [Recovered/Resolved]
  - Abdominal distension [Recovered/Resolved]
  - Nausea [Recovering/Resolving]
  - Vomiting [Recovered/Resolved]
  - Decreased appetite [Recovered/Resolved]
